FAERS Safety Report 13747039 (Version 1)
Quarter: 2017Q3

REPORT INFORMATION
  Report Type: Report from Study
  Country: US (occurrence: US)
  Receive Date: 20170712
  Receipt Date: 20170712
  Transmission Date: 20171127
  Serious: Yes (Death)
  Sender: FDA-Public Use
  Company Number: US-MYLANLABS-2017M1040843

PATIENT

DRUGS (2)
  1. CARBOPLATIN. [Suspect]
     Active Substance: CARBOPLATIN
     Indication: CHEMOTHERAPY
     Dosage: 3 CYCLES OF CARBOPLATIN EVERY 21 DAYS WITH PACLITAXEL AND LATER ADDITIONAL 3 CYCLES
     Route: 065
  2. PACLITAXEL. [Suspect]
     Active Substance: PACLITAXEL
     Indication: CHEMOTHERAPY
     Dosage: 3 CYCLES OF PACLITAXEL 175MG/M2 WITH CARBOPLATIN AND LATER 3 ADDITIONAL CYCLES
     Route: 065

REACTIONS (1)
  - Sepsis [Fatal]
